FAERS Safety Report 14562308 (Version 1)
Quarter: 2018Q1

REPORT INFORMATION
  Report Type: Report from Study
  Country: US (occurrence: US)
  Receive Date: 20180222
  Receipt Date: 20180222
  Transmission Date: 20180509
  Serious: Yes (Hospitalization, Other)
  Sender: FDA-Public Use
  Company Number: US-BAYER-2018-029839

PATIENT
  Age: 72 Year
  Sex: Female

DRUGS (1)
  1. STIVARGA [Suspect]
     Active Substance: REGORAFENIB
     Indication: HEPATOCELLULAR CARCINOMA
     Dosage: 160 MG DAILY, 3 WEEKS ON 1 WEEK OFF
     Route: 048
     Dates: start: 20180208, end: 20180211

REACTIONS (9)
  - Pyrexia [None]
  - Nausea [None]
  - Abdominal distension [None]
  - Confusional state [None]
  - Fatigue [None]
  - Lethargy [None]
  - Food refusal [None]
  - Back pain [None]
  - Pain [None]

NARRATIVE: CASE EVENT DATE: 201802
